FAERS Safety Report 7485048-5 (Version None)
Quarter: 2011Q2

REPORT INFORMATION
  Report Type: 
  Country: None (occurrence: None)
  Receive Date: 20110517
  Receipt Date: 20101111
  Transmission Date: 20111010
  Serious: No
  Sender: FDA-Public Use
  Company Number: US-BAYER-2010-002854

PATIENT
  Sex: Female

DRUGS (1)
  1. ALEVE (CAPLET) [Suspect]
     Indication: ARTHRITIS
     Dosage: 400 MG, BID
     Route: 048
     Dates: start: 20091001, end: 20100101

REACTIONS (2)
  - DYSGEUSIA [None]
  - GASTROINTESTINAL DISORDER [None]
